FAERS Safety Report 9874115 (Version 2)
Quarter: 2014Q1

REPORT INFORMATION
  Report Type: Spontaneous
  Country: US (occurrence: US)
  Receive Date: 20140206
  Receipt Date: 20140206
  Transmission Date: 20141002
  Serious: No
  Sender: FDA-Public Use
  Company Number: US-ACORDA-ACO_33750_2013

PATIENT
  Age: 51 Year
  Sex: Male
  Weight: 78.5 kg

DRUGS (10)
  1. AMPYRA [Suspect]
     Indication: GAIT SPASTIC
     Dosage: 10 MG, BID
     Route: 048
     Dates: start: 20121217, end: 20130105
  2. AMPYRA [Suspect]
     Indication: MULTIPLE SCLEROSIS
     Dosage: 20 MG, BID
     Route: 048
     Dates: start: 20130106, end: 20130109
  3. AMPYRA [Suspect]
     Dosage: 10 MG, BID
     Route: 048
     Dates: start: 20130110
  4. SOLUMEDROL [Concomitant]
     Indication: MULTIPLE SCLEROSIS
     Dosage: 1000 UNK, QD X 5 DAYS
     Route: 042
     Dates: start: 20130107, end: 20130111
  5. BACLOFEN [Concomitant]
     Indication: MUSCLE SPASTICITY
     Dosage: 20 MG, TID
     Route: 048
     Dates: start: 20120619
  6. IBUPROFEN [Concomitant]
     Indication: ARTHRALGIA
     Dosage: 800 MG, TID
     Route: 048
     Dates: start: 20120619
  7. TEMAZEPAM [Concomitant]
     Indication: INSOMNIA
     Dosage: 30 MG, QD NIGHTLY
     Route: 048
     Dates: start: 20120619
  8. CYANOCOBALAMINE [Concomitant]
     Indication: VITAMIN B12 DEFICIENCY
     Dosage: 1 MG, MONTHLY
     Route: 030
     Dates: start: 20120627
  9. FOLIC ACID [Concomitant]
     Indication: FOLATE DEFICIENCY
     Dosage: 1 MG, QD
     Route: 048
     Dates: start: 20120627
  10. VITAMIN D3 [Concomitant]
     Indication: VITAMIN D DEFICIENCY
     Dosage: 6000 UT, QD
     Route: 048
     Dates: start: 20120627

REACTIONS (3)
  - Intentional overdose [Recovered/Resolved]
  - Drug effect decreased [Unknown]
  - Inappropriate schedule of drug administration [Unknown]
